FAERS Safety Report 4928455-4 (Version None)
Quarter: 2006Q1

REPORT INFORMATION
  Report Type: 
  Country: None (occurrence: None)
  Receive Date: 20060223
  Receipt Date: 20060131
  Transmission Date: 20060701
  Serious: Yes (Other)
  Sender: FDA-Public Use
  Company Number: US200602000421

PATIENT
  Age: 17 Year
  Sex: Female

DRUGS (7)
  1. STRATTERA [Suspect]
  2. LITHIUM [Concomitant]
  3. GEODON [Concomitant]
  4. TRAZODONE [Concomitant]
  5. SEROQUEL [Concomitant]
  6. LAMICTAL [Concomitant]
  7. ACETAMINOPHEN [Concomitant]

REACTIONS (3)
  - HEPATIC FAILURE [None]
  - LIVER TRANSPLANT [None]
  - OVERDOSE [None]
